FAERS Safety Report 5793777-4 (Version None)
Quarter: 2008Q2

REPORT INFORMATION
  Report Type: 
  Country: None (occurrence: None)
  Receive Date: 20080627
  Receipt Date: 20080617
  Transmission Date: 20081010
  Serious: Yes (Other)
  Sender: FDA-Public Use
  Company Number: US-PFIZER INC-2008052496

PATIENT
  Sex: Female
  Weight: 77.6 kg

DRUGS (6)
  1. CHANTIX [Suspect]
     Indication: SMOKING CESSATION THERAPY
  2. ATIVAN [Concomitant]
  3. WELLBUTRIN [Concomitant]
     Indication: DEPRESSION
  4. TRAMADOL HCL [Concomitant]
     Indication: MIGRAINE
     Dosage: FREQ:AS NEEDED
  5. IMITREX [Concomitant]
     Indication: MIGRAINE
     Dosage: FREQ:AS NEEDED
  6. TOPAMAX [Concomitant]

REACTIONS (1)
  - DEPRESSION [None]
